FAERS Safety Report 5201781-X (Version None)
Quarter: 2007Q1

REPORT INFORMATION
  Report Type: 
  Country: None (occurrence: None)
  Receive Date: 20070104
  Receipt Date: 20061219
  Transmission Date: 20070707
  Serious: Yes (Hospitalization)
  Sender: FDA-Public Use
  Company Number: GXKR2006GB08365

PATIENT
  Age: 25 Year
  Sex: Female

DRUGS (1)
  1. FLUVOXAMINE (NGX) (FLUVOXAMINE) [Suspect]
     Indication: DRUG USE FOR UNKNOWN INDICATION
     Dosage: 9.6 G, ORAL
     Route: 048

REACTIONS (5)
  - CARPAL COLLAPSE [None]
  - GRAND MAL CONVULSION [None]
  - NO THERAPEUTIC RESPONSE [None]
  - OVERDOSE [None]
  - STATUS EPILEPTICUS [None]
